FAERS Safety Report 20858899 (Version 2)
Quarter: 2022Q3

REPORT INFORMATION
  Report Type: Spontaneous
  Country: US (occurrence: US)
  Receive Date: 20220522
  Receipt Date: 20220921
  Transmission Date: 20221027
  Serious: Yes (Other)
  Sender: FDA-Public Use
  Company Number: US-SA-SAC20220516001691

PATIENT
  Age: 63 Year
  Sex: Female

DRUGS (2)
  1. ZANTAC [Suspect]
     Active Substance: RANITIDINE HYDROCHLORIDE
     Indication: Dyspepsia
     Dosage: 150 MG FREQ:PERIODS OF NON-USE (AT LEAST 3 MONTHS WITHOUT USE)
     Route: 048
     Dates: start: 198401, end: 202001
  2. ZANTAC [Suspect]
     Active Substance: RANITIDINE HYDROCHLORIDE
     Indication: Gastric ulcer

REACTIONS (3)
  - Colorectal cancer [Unknown]
  - Gastrointestinal carcinoma [Unknown]
  - Skin cancer [Unknown]

NARRATIVE: CASE EVENT DATE: 20100101
